FAERS Safety Report 5590577-5 (Version None)
Quarter: 2008Q1

REPORT INFORMATION
  Report Type: 
  Country: None (occurrence: None)
  Receive Date: 20080114
  Receipt Date: 20080110
  Transmission Date: 20080703
  Serious: Yes (Hospitalization, Disabling, Other)
  Sender: FDA-Public Use
  Company Number: PL-ABBOTT-07P-129-0417148-00

PATIENT
  Sex: Female

DRUGS (4)
  1. LIPANTHYL [Suspect]
     Indication: BLOOD CHOLESTEROL INCREASED
     Route: 048
     Dates: start: 20070828, end: 20070904
  2. LIPANTHYL [Suspect]
     Indication: BLOOD TRIGLYCERIDES INCREASED
  3. ENALAPRIL MALEATE [Concomitant]
     Indication: HYPERTENSION
     Route: 048
     Dates: start: 20021001
  4. KLIMAKTOBON [Concomitant]
     Indication: MENOPAUSE
     Route: 048
     Dates: start: 20070401, end: 20070904

REACTIONS (8)
  - ALANINE AMINOTRANSFERASE INCREASED [None]
  - ASPARTATE AMINOTRANSFERASE INCREASED [None]
  - HEPATOTOXICITY [None]
  - MALAISE [None]
  - MENOPAUSAL SYMPTOMS [None]
  - MYALGIA [None]
  - NIGHT SWEATS [None]
  - RHABDOMYOLYSIS [None]
